FAERS Safety Report 8509551-1 (Version None)
Quarter: 2012Q3

REPORT INFORMATION
  Report Type: 
  Country: None (occurrence: None)
  Receive Date: 20120713
  Receipt Date: 20120706
  Transmission Date: 20120928
  Serious: Yes (Other)
  Sender: FDA-Public Use
  Company Number: PHHY2012FR041322

PATIENT
  Sex: Female

DRUGS (1)
  1. GILENYA [Suspect]
     Route: 048

REACTIONS (4)
  - HYPERTHERMIA [None]
  - DIARRHOEA HAEMORRHAGIC [None]
  - PROCTOCOLITIS [None]
  - C-REACTIVE PROTEIN INCREASED [None]
